FAERS Safety Report 8789605 (Version 1)
Quarter: 2012Q4

REPORT INFORMATION
  Report Type: Spontaneous
  Country: TR (occurrence: None)
  Receive Date: 20120905
  Receipt Date: 20120905
  Transmission Date: 20130627
  Serious: Yes (Death)
  Sender: FDA-Public Use
  Company Number: 12TR005166

PATIENT
  Age: 19 Year
  Sex: Female

DRUGS (2)
  1. VALPROIC ACID [Suspect]
     Indication: CHOREA
  2. STREPTOMYCIN (STREPTOMYCIN) [Concomitant]

REACTIONS (12)
  - Drug reaction with eosinophilia and systemic symptoms [None]
  - Acute hepatic failure [None]
  - Acute tonsillitis [None]
  - Staphylococcal sepsis [None]
  - Antineutrophil cytoplasmic antibody positive [None]
  - Pleural effusion [None]
  - Encephalopathy [None]
  - Metabolic acidosis [None]
  - Respiratory alkalosis [None]
  - Lactic acidosis [None]
  - Cough [None]
  - Pyrexia [None]
